FAERS Safety Report 12453793 (Version 1)
Quarter: 2016Q2

REPORT INFORMATION
  Report Type: Spontaneous
  Country: US (occurrence: US)
  Receive Date: 20160609
  Receipt Date: 20160609
  Transmission Date: 20160815
  Serious: Yes (Other)
  Sender: FDA-Public Use
  Company Number: US-GLAXOSMITHKLINE-A1021174A

PATIENT
  Age: 56 Year
  Sex: Female

DRUGS (5)
  1. LANTUS [Concomitant]
     Active Substance: INSULIN GLARGINE
  2. TRADJENTA [Concomitant]
     Active Substance: LINAGLIPTIN
  3. ADVAIR HFA [Suspect]
     Active Substance: FLUTICASONE PROPIONATE\SALMETEROL XINAFOATE
     Indication: PRODUCT USED FOR UNKNOWN INDICATION
     Dosage: UNK UNK, U
     Route: 055
  4. NEOMYCIN [Suspect]
     Active Substance: NEOMYCIN
     Indication: PRODUCT USED FOR UNKNOWN INDICATION
  5. NOVOLOG [Concomitant]
     Active Substance: INSULIN ASPART

REACTIONS (9)
  - Arthralgia [Unknown]
  - Cataract [Unknown]
  - Weight decreased [Unknown]
  - Gait disturbance [Unknown]
  - Back pain [Unknown]
  - Drug hypersensitivity [Unknown]
  - Incorrect dosage administered [Unknown]
  - Impaired gastric emptying [Unknown]
  - Epistaxis [Unknown]

NARRATIVE: CASE EVENT DATE: 20140418
